FAERS Safety Report 5386363-1 (Version None)
Quarter: 2007Q3

REPORT INFORMATION
  Report Type: 
  Country: None (occurrence: None)
  Receive Date: 20070705
  Receipt Date: 20070705
  Transmission Date: 20080115
  Serious: No
  Sender: FDA-Public Use
  Company Number: None

PATIENT
  Age: 77 Year

DRUGS (1)
  1. ATENOLOL [Suspect]
     Indication: HYPERTENSION
     Dosage: TAKE 1 TABLET DAILY
     Dates: start: 20070315, end: 20070525

REACTIONS (2)
  - BLOOD PRESSURE SYSTOLIC INCREASED [None]
  - PHARMACEUTICAL PRODUCT COMPLAINT [None]
